FAERS Safety Report 13274986 (Version 3)
Quarter: 2017Q1

REPORT INFORMATION
  Report Type: Report from Study
  Country: US (occurrence: US)
  Receive Date: 20170227
  Receipt Date: 20170307
  Transmission Date: 20170428
  Serious: Yes (Hospitalization)
  Sender: FDA-Public Use
  Company Number: US-VIFOR (INTERNATIONAL) INC.-VIT-2017-02056

PATIENT
  Sex: Female

DRUGS (18)
  1. VELTASSA [Suspect]
     Active Substance: PATIROMER
     Indication: HYPERKALAEMIA
  2. AMLODIPINE BESILATE [Concomitant]
     Active Substance: AMLODIPINE BESYLATE
  3. HYDRALAZINE HYDROCHLORIDE. [Concomitant]
     Active Substance: HYDRALAZINE HYDROCHLORIDE
  4. COLECALCIFEROL [Concomitant]
     Active Substance: CHOLECALCIFEROL
  5. BUDESONIDE. [Concomitant]
     Active Substance: BUDESONIDE
  6. NEURONTIN [Concomitant]
     Active Substance: GABAPENTIN
  7. INDAPAMIDE. [Concomitant]
     Active Substance: INDAPAMIDE
  8. MONTELUKAST SODIUM. [Concomitant]
     Active Substance: MONTELUKAST SODIUM
  9. SALBUTAMOL SULFATE [Concomitant]
     Active Substance: ALBUTEROL SULFATE
  10. CITALOPRAM HYDROBROMIDE. [Concomitant]
     Active Substance: CITALOPRAM HYDROBROMIDE
  11. VELTASSA [Suspect]
     Active Substance: PATIROMER
     Route: 048
     Dates: start: 20161019
  12. ALPRAZOLAM. [Concomitant]
     Active Substance: ALPRAZOLAM
  13. ASCORBIC ACID. [Concomitant]
     Active Substance: ASCORBIC ACID
  14. OMEPRAZOLE. [Concomitant]
     Active Substance: OMEPRAZOLE
  15. SUCRALFATE. [Concomitant]
     Active Substance: SUCRALFATE
  16. TRAMADOL HYDROCHLORIDE. [Concomitant]
     Active Substance: TRAMADOL HYDROCHLORIDE
  17. DYAZIDE [Concomitant]
     Active Substance: HYDROCHLOROTHIAZIDE\TRIAMTERENE
  18. FERROUS SULFATE. [Concomitant]
     Active Substance: FERROUS SULFATE

REACTIONS (4)
  - Pneumonia [Unknown]
  - Rib fracture [Unknown]
  - Blood potassium increased [Unknown]
  - Inappropriate schedule of drug administration [Recovered/Resolved]
